FAERS Safety Report 6650432-6 (Version None)
Quarter: 2010Q1

REPORT INFORMATION
  Report Type: 
  Country: None (occurrence: None)
  Receive Date: 20100325
  Receipt Date: 20100209
  Transmission Date: 20100710
  Serious: Yes (Life-Threatening)
  Sender: FDA-Public Use
  Company Number: FR-SANOFI-AVENTIS-2010SA007522

PATIENT
  Age: 84 Year
  Sex: Female
  Weight: 63 kg

DRUGS (15)
  1. ARAVA [Suspect]
     Route: 048
     Dates: start: 20091118, end: 20091214
  2. DERMOVAL [Suspect]
     Route: 061
     Dates: start: 20090624, end: 20091214
  3. ADANCOR [Concomitant]
     Route: 048
  4. ARICEPT [Concomitant]
     Indication: DEMENTIA
     Route: 048
  5. CLARITIN [Concomitant]
     Route: 048
  6. HEMIGOXINE NATIVELLE [Concomitant]
     Route: 048
     Dates: start: 20090818
  7. RISPERDAL [Concomitant]
     Indication: AGITATION
     Route: 048
     Dates: start: 20090728
  8. VOGALENE [Concomitant]
     Indication: VOMITING
     Route: 048
     Dates: start: 20090728
  9. ESOMEPRAZOLE [Concomitant]
     Indication: GASTRITIS
     Route: 048
     Dates: start: 20090728
  10. DAFLON [Concomitant]
     Indication: VENOUS INSUFFICIENCY
     Route: 048
     Dates: start: 20091102
  11. TARDYFERON /GFR/ [Concomitant]
     Indication: IRON DEFICIENCY
     Route: 048
     Dates: start: 20090813
  12. DOLIPRANE [Concomitant]
     Route: 048
     Dates: start: 20090728
  13. ARIXTRA [Concomitant]
     Route: 058
     Dates: start: 20090728
  14. DIFFU K [Concomitant]
  15. AMYCOR [Concomitant]
     Route: 061
     Dates: start: 20091119, end: 20091209

REACTIONS (2)
  - CARDIAC FAILURE [None]
  - LUNG INFECTION [None]
